FAERS Safety Report 13666327 (Version 1)
Quarter: 2017Q2

REPORT INFORMATION
  Report Type: Spontaneous
  Country: US (occurrence: US)
  Receive Date: 20170619
  Receipt Date: 20170619
  Transmission Date: 20170830
  Serious: No
  Sender: FDA-Public Use
  Company Number: US-ROCHE-1359063

PATIENT
  Age: 67 Year
  Sex: Female

DRUGS (2)
  1. XELODA [Suspect]
     Active Substance: CAPECITABINE
     Indication: NEOPLASM MALIGNANT
     Dosage: 5 TABS AM AND 4 TABS EVENING, 14 DAYS ON, 7 DAYS OFF
     Route: 048
     Dates: start: 20140109
  2. XELODA [Suspect]
     Active Substance: CAPECITABINE
     Dosage: 5 TABS AM AND 4 TABS EVENING, 14 DAYS ON, 7 DAYS OFF
     Route: 048
     Dates: start: 20140425

REACTIONS (4)
  - Erythema [Unknown]
  - Palmar-plantar erythrodysaesthesia syndrome [Unknown]
  - Dry skin [Unknown]
  - Diarrhoea [Unknown]

NARRATIVE: CASE EVENT DATE: 20140312
